FAERS Safety Report 5062210-2 (Version None)
Quarter: 2006Q3

REPORT INFORMATION
  Report Type: 
  Country: None (occurrence: None)
  Receive Date: 20060721
  Receipt Date: 20060711
  Transmission Date: 20061208
  Serious: Yes (Hospitalization, Other)
  Sender: FDA-Public Use
  Company Number: HQWYE618529JUL04

PATIENT
  Age: 61 Year
  Sex: Female
  Weight: 59.02 kg

DRUGS (1)
  1. PREMPRO [Suspect]
     Dates: end: 20020301

REACTIONS (2)
  - BREAST CANCER [None]
  - METASTASES TO LYMPH NODES [None]
